FAERS Safety Report 4981071-0 (Version None)
Quarter: 2006Q2

REPORT INFORMATION
  Report Type: 
  Country: None (occurrence: None)
  Receive Date: 20060418
  Receipt Date: 20060328
  Transmission Date: 20061013
  Serious: Yes (Other)
  Sender: FDA-Public Use
  Company Number: US200602002584

PATIENT
  Age: 42 Year
  Sex: Female

DRUGS (3)
  1. CYMBALTA [Suspect]
     Indication: NEURALGIA
     Dosage: 60 MG
     Dates: start: 20050601, end: 20060101
  2. NEURONTIN [Concomitant]
  3. NEXIUM [Concomitant]

REACTIONS (4)
  - ALOPECIA [None]
  - RASH [None]
  - SKIN NECROSIS [None]
  - SKIN ULCER [None]
